FAERS Safety Report 13491046 (Version 1)
Quarter: 2017Q2

REPORT INFORMATION
  Report Type: Report from Study
  Country: None (occurrence: US)
  Receive Date: 20170427
  Receipt Date: 20170427
  Transmission Date: 20170830
  Serious: Yes (Other)
  Sender: FDA-Public Use
  Company Number: US-ABBVIE-16K-163-1599772-00

PATIENT
  Age: 59 Year
  Sex: Female

DRUGS (1)
  1. HUMIRA [Suspect]
     Active Substance: ADALIMUMAB
     Indication: RHEUMATOID ARTHRITIS
     Route: 058
     Dates: start: 200901

REACTIONS (6)
  - Dyspnoea [Not Recovered/Not Resolved]
  - Muscular weakness [Unknown]
  - Spinal compression fracture [Unknown]
  - Spinal column stenosis [Unknown]
  - Neuralgia [Unknown]
  - Spinal cord compression [Unknown]

NARRATIVE: CASE EVENT DATE: 201505
